FAERS Safety Report 10336446 (Version 1)
Quarter: 2014Q3

REPORT INFORMATION
  Report Type: Spontaneous
  Country: US (occurrence: US)
  Receive Date: 20140723
  Receipt Date: 20140723
  Transmission Date: 20150326
  Serious: No
  Sender: FDA-Public Use
  Company Number: US-BRISTOL-MYERS SQUIBB COMPANY-20642500

PATIENT

DRUGS (2)
  1. COUMADIN [Suspect]
     Active Substance: WARFARIN SODIUM
  2. CELEBREX [Interacting]
     Active Substance: CELECOXIB

REACTIONS (2)
  - Drug interaction [Unknown]
  - Haemorrhage [Unknown]
